FAERS Safety Report 10333518 (Version 3)
Quarter: 2014Q4

REPORT INFORMATION
  Report Type: Spontaneous
  Country: US (occurrence: US)
  Receive Date: 20140722
  Receipt Date: 20141021
  Transmission Date: 20150528
  Serious: No
  Sender: FDA-Public Use
  Company Number: US-009507513-1407USA008091

PATIENT
  Age: 22 Year
  Sex: Female

DRUGS (2)
  1. NEXPLANON [Suspect]
     Active Substance: ETONOGESTREL
     Dosage: 68MG/ ONE ROD INSERTED EVERY THREE YEARS
     Route: 059
     Dates: start: 20140701
  2. NEXPLANON [Suspect]
     Active Substance: ETONOGESTREL
     Dosage: 68MG/ ONE ROD INSERTED EVERY THREE YEARS
     Route: 059
     Dates: start: 20140701, end: 20140701

REACTIONS (3)
  - Device difficult to use [Recovered/Resolved]
  - Product quality issue [Unknown]
  - No adverse event [Unknown]

NARRATIVE: CASE EVENT DATE: 20140701
